FAERS Safety Report 4784883-1 (Version None)
Quarter: 2005Q3

REPORT INFORMATION
  Report Type: 
  Country: None (occurrence: None)
  Receive Date: 20050929
  Receipt Date: 20050929
  Transmission Date: 20060218
  Serious: Yes (Hospitalization)
  Sender: FDA-Public Use
  Company Number: None

PATIENT
  Age: 13 Year
  Sex: Male
  Weight: 48 kg

DRUGS (1)
  1. CLINDAMYCIN [Suspect]
     Indication: INFECTION
     Dosage: 300 MG IV Q6H
     Route: 042

REACTIONS (1)
  - CLOSTRIDIUM COLITIS [None]
